FAERS Safety Report 5465543-0 (Version None)
Quarter: 2007Q3

REPORT INFORMATION
  Report Type: 
  Country: None (occurrence: None)
  Receive Date: 20070924
  Receipt Date: 19990204
  Transmission Date: 20080115
  Serious: Yes (Hospitalization)
  Sender: FDA-Public Use
  Company Number: FR-PFIZER INC-2006118159

PATIENT
  Sex: Male

DRUGS (3)
  1. IRINOTECAN HCL [Suspect]
     Indication: COLORECTAL CANCER
     Dosage: DAILY DOSE:420MG
     Route: 042
     Dates: start: 19981218, end: 19981218
  2. GRANOCYTE [Concomitant]
     Dates: start: 19981219, end: 19981225
  3. TEMESTA [Concomitant]
     Dosage: TEXT:0.5

REACTIONS (1)
  - RENAL COLIC [None]
